FAERS Safety Report 10760376 (Version 1)
Quarter: 2015Q1

REPORT INFORMATION
  Report Type: Spontaneous
  Country: US (occurrence: US)
  Receive Date: 20150204
  Receipt Date: 20150204
  Transmission Date: 20150721
  Serious: No
  Sender: FDA-Public Use
  Company Number: US-BRISTOL-MYERS SQUIBB COMPANY-BMS-2015-006120

PATIENT
  Age: 72 Year
  Sex: Female

DRUGS (2)
  1. KENALOG-40 [Suspect]
     Active Substance: TRIAMCINOLONE ACETONIDE
     Indication: SWELLING
  2. KENALOG-40 [Suspect]
     Active Substance: TRIAMCINOLONE ACETONIDE
     Indication: ARTHRITIS
     Dosage: 80 MG, UNK
     Route: 013
     Dates: start: 20150108

REACTIONS (3)
  - Palpitations [Unknown]
  - Vaginal haemorrhage [Unknown]
  - Erythema [Unknown]

NARRATIVE: CASE EVENT DATE: 20150117
